FAERS Safety Report 8135011-6 (Version None)
Quarter: 2012Q1

REPORT INFORMATION
  Report Type: 
  Country: None (occurrence: None)
  Receive Date: 20120214
  Receipt Date: 20120207
  Transmission Date: 20120608
  Serious: Yes (Other)
  Sender: FDA-Public Use
  Company Number: US-ROXANE LABORATORIES, INC.-2012-RO-00610RO

PATIENT
  Age: 39 Year
  Sex: Female

DRUGS (8)
  1. CITALOPRAM HYDROBROMIDE [Suspect]
     Dosage: 40 MG
  2. BUPRENORPHINE HCL AND NALOXONE HCL [Suspect]
     Dosage: 8 MG
     Route: 060
  3. QUETIAPINE [Suspect]
     Dosage: 450 MG
  4. BUPRENORPHINE HCL AND NALOXONE HCL [Suspect]
     Indication: DRUG DEPENDENCE
     Dosage: 4 MG
     Route: 060
  5. HALOPERIDOL [Suspect]
     Dosage: 5 MG
  6. CLONAZEPAM [Suspect]
     Dosage: 3 MG
  7. TRAZODONE HCL [Suspect]
     Dosage: 100 MG
  8. BENZTROPINE MESYLATE [Suspect]
     Dosage: 1 MG

REACTIONS (2)
  - OVERDOSE [None]
  - FATIGUE [None]
